FAERS Safety Report 23129465 (Version 1)
Quarter: 2023Q4

REPORT INFORMATION
  Report Type: Spontaneous
  Country: US (occurrence: None)
  Receive Date: 20231030
  Receipt Date: 20231030
  Transmission Date: 20240110
  Serious: Yes (Life-Threatening, Hospitalization, Disabling, Other)
  Sender: FDA-Public Use
  Company Number: None

PATIENT
  Age: 54 Year
  Sex: Male
  Weight: 76 kg

DRUGS (5)
  1. SUGAMMADEX [Suspect]
     Active Substance: SUGAMMADEX
     Indication: Neuromuscular blockade reversal
     Dosage: FREQUENCY : AS NEEDED;?
     Dates: start: 20201006, end: 20201006
  2. ketamine 40mg [Concomitant]
     Dates: start: 20201006
  3. versed 2mg [Concomitant]
     Dates: start: 20201006
  4. propofol 200mg [Concomitant]
     Dates: start: 20201006
  5. rocuronium 80mg [Concomitant]
     Dates: start: 20201006

REACTIONS (5)
  - Bradycardia [None]
  - Heart rate increased [None]
  - Blood pressure increased [None]
  - Unresponsive to stimuli [None]
  - Cardio-respiratory arrest [None]

NARRATIVE: CASE EVENT DATE: 20201006
